FAERS Safety Report 11967089 (Version 1)
Quarter: 2016Q1

REPORT INFORMATION
  Report Type: Spontaneous
  Country: TR (occurrence: TR)
  Receive Date: 20160127
  Receipt Date: 20160127
  Transmission Date: 20160526
  Serious: Yes (Death, Hospitalization)
  Sender: FDA-Public Use
  Company Number: TR-WATSON-2016-01119

PATIENT
  Age: 39 Year
  Sex: Female

DRUGS (1)
  1. ACETAZOLAMIDE (WATSON LABORATORIES) [Suspect]
     Active Substance: ACETAZOLAMIDE
     Indication: SUICIDE ATTEMPT
     Dosage: 2500 MG, TOTAL
     Route: 048

REACTIONS (4)
  - Atrioventricular block [Fatal]
  - Completed suicide [Fatal]
  - Metabolic acidosis [Fatal]
  - Intentional overdose [Fatal]
